FAERS Safety Report 8429145-6 (Version None)
Quarter: 2012Q2

REPORT INFORMATION
  Report Type: 
  Country: None (occurrence: None)
  Receive Date: 20120612
  Receipt Date: 20120604
  Transmission Date: 20120825
  Serious: Yes (Hospitalization)
  Sender: FDA-Public Use
  Company Number: US-BAYER-2012-028636

PATIENT
  Age: 32 Year
  Sex: Female
  Weight: 61.224 kg

DRUGS (4)
  1. AMOXICILLIN [Concomitant]
     Dosage: 500 MG, UNK
     Dates: start: 20100713
  2. YAZ [Suspect]
     Dosage: UNK
     Dates: start: 20060101
  3. HYDROCODONE BITARTRATE + ACETAMINOPHEN [Concomitant]
     Dosage: UNK
     Dates: start: 20100713
  4. IBUPROFEN [Concomitant]
     Dosage: 800 MG, UNK
     Dates: start: 20100713

REACTIONS (7)
  - PAIN [None]
  - GENERAL PHYSICAL HEALTH DETERIORATION [None]
  - CHOLECYSTITIS CHRONIC [None]
  - ANXIETY [None]
  - EMOTIONAL DISTRESS [None]
  - GALLBLADDER DISORDER [None]
  - INJURY [None]
